FAERS Safety Report 8351322-3 (Version None)
Quarter: 2012Q2

REPORT INFORMATION
  Report Type: 
  Country: None (occurrence: None)
  Receive Date: 20120510
  Receipt Date: 20120427
  Transmission Date: 20120825
  Serious: Yes (Other)
  Sender: FDA-Public Use
  Company Number: JP-BAXTER-2012BH001592

PATIENT
  Sex: Male
  Weight: 16 kg

DRUGS (4)
  1. CEFAZOLIN [Concomitant]
     Indication: INFECTION PROPHYLAXIS
     Route: 042
     Dates: start: 20081001, end: 20081006
  2. ADVATE [Suspect]
     Route: 042
     Dates: start: 20081001, end: 20081001
  3. ADVATE [Suspect]
     Dosage: 8.3 IU/KG/HOUR
     Route: 042
     Dates: start: 20081001, end: 20081006
  4. ADVATE [Suspect]
     Route: 042
     Dates: start: 20081007, end: 20081010

REACTIONS (2)
  - FACTOR VIII INHIBITION [None]
  - CONDITION AGGRAVATED [None]
